FAERS Safety Report 9682012 (Version 2)
Quarter: 2013Q4

REPORT INFORMATION
  Report Type: Spontaneous
  Country: US (occurrence: US)
  Receive Date: 20131111
  Receipt Date: 20131111
  Transmission Date: 20140711
  Serious: Yes (Life-Threatening, Hospitalization)
  Sender: FDA-Public Use
  Company Number: US-CELGENEUS-163-POMAL-13101127

PATIENT
  Sex: 0

DRUGS (16)
  1. POMALYST [Suspect]
     Indication: PLASMA CELL MYELOMA
     Route: 048
  2. PANTOPRAZOLE [Concomitant]
     Indication: PRODUCT USED FOR UNKNOWN INDICATION
     Dosage: 40 MILLIGRAM
     Route: 065
     Dates: start: 20131012
  3. SODIUM CITRATE-CITRIC ACID [Concomitant]
     Indication: PRODUCT USED FOR UNKNOWN INDICATION
     Dosage: 500-334MG/5M 15 ML
     Route: 065
     Dates: start: 20131014
  4. MEGESTROL [Concomitant]
     Indication: PRODUCT USED FOR UNKNOWN INDICATION
     Dosage: 400MG/10ML
     Route: 065
     Dates: start: 20131014
  5. B COMPLEX +VITAMIN C +FOLIC ACID [Concomitant]
     Indication: PRODUCT USED FOR UNKNOWN INDICATION
     Route: 065
     Dates: start: 20131016
  6. PROMETHAZINE [Concomitant]
     Indication: PRODUCT USED FOR UNKNOWN INDICATION
     Route: 065
     Dates: start: 20131015
  7. SENNA [Concomitant]
     Indication: PRODUCT USED FOR UNKNOWN INDICATION
     Dosage: 17.2 MILLIGRAM
     Route: 065
     Dates: start: 20131017
  8. DOCUSATE SODIUM [Concomitant]
     Indication: CONSTIPATION
     Route: 065
     Dates: start: 20131022
  9. FENTANYL [Concomitant]
     Indication: PRODUCT USED FOR UNKNOWN INDICATION
     Route: 062
     Dates: start: 20131024
  10. ONDANSETRON HCL [Concomitant]
     Indication: NAUSEA
     Dosage: 4MG/2ML
     Route: 065
     Dates: start: 20131012
  11. ONDANSETRON HCL [Concomitant]
     Indication: VOMITING
  12. MAGNESIUM HYDROXIDE [Concomitant]
     Indication: CONSTIPATION
     Dosage: 30 MILLILITER
     Route: 065
     Dates: start: 20131016
  13. TEMAZEPAM [Concomitant]
     Indication: INSOMNIA
     Dosage: 30 MILLIGRAM
     Route: 048
     Dates: start: 20131016
  14. MORPHINE [Concomitant]
     Indication: PAIN
     Dosage: 24 MILLIGRAM/MILLILITERS
     Route: 048
     Dates: start: 20131025
  15. HYDROMORPHONE [Concomitant]
     Indication: PAIN
     Dosage: 12 MILLIGRAM
     Route: 048
     Dates: start: 20131025
  16. HYDROMORPHONE [Concomitant]
     Dosage: 1MG/0.5ML
     Route: 065
     Dates: start: 20131028

REACTIONS (1)
  - Renal failure acute [Not Recovered/Not Resolved]
